FAERS Safety Report 8208118-2 (Version None)
Quarter: 2012Q1

REPORT INFORMATION
  Report Type: 
  Country: None (occurrence: None)
  Receive Date: 20120314
  Receipt Date: 20120307
  Transmission Date: 20120608
  Serious: Yes (Other)
  Sender: FDA-Public Use
  Company Number: PHEH2011US00494

PATIENT
  Sex: Female

DRUGS (1)
  1. ZOMETA [Suspect]
     Dates: end: 20080101

REACTIONS (29)
  - INTERVERTEBRAL DISC DEGENERATION [None]
  - GINGIVAL DISORDER [None]
  - RIB FRACTURE [None]
  - ANAEMIA [None]
  - EMOTIONAL DISTRESS [None]
  - BONE LOSS [None]
  - BREAST PAIN [None]
  - INSOMNIA [None]
  - ANXIETY [None]
  - OEDEMA PERIPHERAL [None]
  - TOOTH DISORDER [None]
  - BACK PAIN [None]
  - METASTASES TO LYMPH NODES [None]
  - INJURY [None]
  - SPINAL COLUMN STENOSIS [None]
  - CHEST PAIN [None]
  - DEFORMITY [None]
  - MUSCULOSKELETAL CHEST PAIN [None]
  - FUNGAL SKIN INFECTION [None]
  - OSTEONECROSIS OF JAW [None]
  - PAIN [None]
  - INTERVERTEBRAL DISC PROTRUSION [None]
  - INTERVERTEBRAL DISC SPACE NARROWING [None]
  - ABDOMINAL MASS [None]
  - GINGIVAL PAIN [None]
  - LOOSE TOOTH [None]
  - FALL [None]
  - BONE LESION [None]
  - DYSPNOEA EXERTIONAL [None]
